FAERS Safety Report 19745385 (Version 1)
Quarter: 2021Q3

REPORT INFORMATION
  Report Type: Spontaneous
  Country: GB (occurrence: GB)
  Receive Date: 20210825
  Receipt Date: 20210825
  Transmission Date: 20211014
  Serious: Yes (Disabling)
  Sender: FDA-Public Use
  Company Number: GB-MYLANLABS-2021M1054933

PATIENT
  Age: 89 Year
  Sex: Female
  Weight: 46 kg

DRUGS (13)
  1. NITROFURANTOIN. [Suspect]
     Active Substance: NITROFURANTOIN
     Indication: PRODUCT USED FOR UNKNOWN INDICATION
     Dosage: 100 MILLIGRAM, BID
     Dates: start: 20210817
  2. TRIMETHOPRIM. [Concomitant]
     Active Substance: TRIMETHOPRIM
     Dosage: AT NIGHT
     Dates: start: 20210818
  3. GABAPENTIN. [Concomitant]
     Active Substance: GABAPENTIN
     Indication: PAIN
     Dosage: 1 DOSAGE FORM, TID
     Dates: start: 20210518
  4. OMEPRAZOLE. [Concomitant]
     Active Substance: OMEPRAZOLE
     Indication: GASTRIC PH DECREASED
     Dosage: 1 DOSAGE FORM, QD
     Dates: start: 20210426
  5. HYPROMELLOSE [Concomitant]
     Active Substance: HYPROMELLOSES
     Dosage: 1 GTT DROPS, TID
     Dates: start: 20210817
  6. SALBUTAMOL [Concomitant]
     Active Substance: ALBUTEROL
     Dosage: INHALE 1?2 DOSES AS NEEDED
     Route: 055
     Dates: start: 20210706
  7. ADCAL                              /07357001/ [Concomitant]
     Active Substance: CALCIUM CARBONATE
     Dosage: 2 DOSAGE FORM, BID
     Dates: start: 20210426, end: 20210601
  8. LAXIDO [Concomitant]
     Active Substance: POLYETHYLENE GLYCOL 3350\POTASSIUM CHLORIDE\SODIUM BICARBONATE\SODIUM CHLORIDE
     Indication: CONSTIPATION
     Dosage: WHEN REQUIRED
     Dates: start: 20210309
  9. SENNA                              /02118001/ [Concomitant]
     Active Substance: HERBALS\SENNOSIDES
     Dosage: AT NIGHT
     Dates: start: 20210426, end: 20210601
  10. ALENDRONIC ACID [Concomitant]
     Active Substance: ALENDRONIC ACID
     Dosage: ON AN EMPTY STOMACH, WITH PLEN
     Dates: start: 20210426
  11. PARACETAMOL [Concomitant]
     Active Substance: ACETAMINOPHEN
     Dosage: WHEN REQUIRED
     Dates: start: 20210309
  12. FENCINO [Concomitant]
     Indication: PAIN
     Dosage: 1 DOSAGE FORM, Q3D
     Dates: start: 20210518
  13. TRIMBOW [Concomitant]
     Active Substance: BECLOMETHASONE DIPROPIONATE\FORMOTEROL FUMARATE\GLYCOPYRROLATE
     Dosage: INHALE SLOWLY AND STEADILY
     Route: 055
     Dates: start: 20210309

REACTIONS (1)
  - Vomiting [Recovered/Resolved]

NARRATIVE: CASE EVENT DATE: 20210818
